FAERS Safety Report 16855352 (Version 1)
Quarter: 2019Q4

REPORT INFORMATION
  Report Type: Spontaneous
  Country: US (occurrence: US)
  Receive Date: 20190926
  Receipt Date: 20190926
  Transmission Date: 20200122
  Serious: Yes (Hospitalization)
  Sender: FDA-Public Use
  Company Number: None

PATIENT
  Age: 62 Year
  Sex: Female

DRUGS (1)
  1. GAMUNEX-C [Suspect]
     Active Substance: HUMAN IMMUNOGLOBULIN G
     Indication: IMMUNODEFICIENCY
     Dosage: ?          OTHER FREQUENCY:EVERY FOUR WEEKS;?
     Route: 042
     Dates: start: 20170301

REACTIONS (3)
  - Therapy cessation [None]
  - Unevaluable event [None]
  - Sepsis [None]

NARRATIVE: CASE EVENT DATE: 20190828
